FAERS Safety Report 7820556-6 (Version None)
Quarter: 2011Q4

REPORT INFORMATION
  Report Type: 
  Country: None (occurrence: None)
  Receive Date: 20111018
  Receipt Date: 20111004
  Transmission Date: 20120403
  Serious: Yes (Hospitalization, Other)
  Sender: FDA-Public Use
  Company Number: PHHY2010US65274

PATIENT
  Sex: Female

DRUGS (2)
  1. TASIGNA [Suspect]
     Indication: ACUTE LYMPHOCYTIC LEUKAEMIA
     Dosage: 300 MG, BID
     Route: 048
     Dates: start: 20100915
  2. GLEEVEC [Suspect]
     Indication: ACUTE LYMPHOCYTIC LEUKAEMIA
     Dosage: 100 MG, QD
     Route: 048
     Dates: start: 20100722

REACTIONS (7)
  - VOMITING [None]
  - NAUSEA [None]
  - HIP FRACTURE [None]
  - BENIGN RENAL NEOPLASM [None]
  - BLOOD PRESSURE SYSTOLIC INCREASED [None]
  - URINARY RETENTION [None]
  - ABDOMINAL PAIN UPPER [None]
